FAERS Safety Report 6701788-7 (Version None)
Quarter: 2010Q2

REPORT INFORMATION
  Report Type: 
  Country: None (occurrence: None)
  Receive Date: 20100429
  Receipt Date: 20100426
  Transmission Date: 20101027
  Serious: Yes (Death)
  Sender: FDA-Public Use
  Company Number: PHHY2010DE26548

PATIENT
  Age: 55 Year
  Sex: Female

DRUGS (3)
  1. CYCLOSPORINE [Suspect]
     Indication: ECZEMA
     Dosage: UNK
     Dates: start: 20020101, end: 20090201
  2. SANDIMMUNE [Suspect]
     Indication: ECZEMA
     Dosage: UNK
     Dates: start: 20020101, end: 20090201
  3. ALITRETINOIN [Concomitant]
     Indication: ECZEMA
     Dosage: UNK
     Dates: start: 20090201

REACTIONS (1)
  - LUNG NEOPLASM MALIGNANT [None]
